FAERS Safety Report 9350284 (Version 2)
Quarter: 2013Q4

REPORT INFORMATION
  Report Type: Report from Study
  Country: ES (occurrence: ES)
  Receive Date: 20130617
  Receipt Date: 20131008
  Transmission Date: 20140711
  Serious: Yes (Hospitalization, Other)
  Sender: FDA-Public Use
  Company Number: ES-ROCHE-1235631

PATIENT
  Age: 15 Year
  Sex: Male

DRUGS (15)
  1. VALGANCICLOVIR HYDROCHLORIDE [Concomitant]
     Route: 048
  2. VALGANCICLOVIR HYDROCHLORIDE [Concomitant]
     Dosage: FOR 5 WEEKS
     Route: 042
  3. GANCICLOVIR [Suspect]
     Indication: CYTOMEGALOVIRUS INFECTION
     Dosage: STARTED 24 HOURS POST TRANSPLANT
     Route: 042
  4. GANCICLOVIR [Suspect]
     Route: 042
  5. GANCICLOVIR [Suspect]
     Route: 042
  6. GANCICLOVIR [Suspect]
     Route: 042
  7. MYCOPHENOLATE MOFETIL [Suspect]
     Indication: IMMUNOSUPPRESSION
     Dosage: STARTED 3 DAYS?PRIOR TO TRANSPLANT
     Route: 065
  8. MYCOPHENOLATE MOFETIL [Suspect]
     Route: 065
  9. MYCOPHENOLATE MOFETIL [Suspect]
     Route: 065
  10. MYCOPHENOLATE MOFETIL [Suspect]
     Route: 065
  11. TACROLIMUS [Concomitant]
     Indication: IMMUNOSUPPRESSION
     Dosage: SUBSEQUENTLY INCREASED UPTO 0.26 MG/KG/DAY
     Route: 065
  12. FRESENIUS ATG [Concomitant]
     Indication: IMMUNOSUPPRESSION
     Route: 065
  13. CO-TRIMOXAZOLE [Concomitant]
     Indication: PROPHYLAXIS
     Route: 048
  14. NYSTATIN [Concomitant]
     Route: 048
  15. VALGANCICLOVIR HYDROCHLORIDE [Concomitant]
     Indication: CYTOMEGALOVIRUS INFECTION
     Route: 048

REACTIONS (2)
  - Cytomegalovirus infection [Recovered/Resolved]
  - Drug resistance [Unknown]
